FAERS Safety Report 23377326 (Version 1)
Quarter: 2024Q1

REPORT INFORMATION
  Report Type: Spontaneous
  Country: US (occurrence: US)
  Receive Date: 20240108
  Receipt Date: 20240108
  Transmission Date: 20240409
  Serious: No
  Sender: FDA-Public Use
  Company Number: US-MELINTA THERAPEUTICS, LLC-US-MLNT-23-00650

PATIENT

DRUGS (8)
  1. REZZAYO [Suspect]
     Active Substance: REZAFUNGIN
     Indication: Otitis externa fungal
     Dosage: 400 MG, ONCE WEEKLY
     Route: 042
  2. REZZAYO [Suspect]
     Active Substance: REZAFUNGIN
     Indication: Otitis media fungal
  3. MICAFUNGIN [Concomitant]
     Active Substance: MICAFUNGIN SODIUM
     Indication: Aspergillus infection
     Dosage: DAILY
  4. MICAFUNGIN [Concomitant]
     Active Substance: MICAFUNGIN SODIUM
     Indication: Pantoea agglomerans infection
  5. MICAFUNGIN [Concomitant]
     Active Substance: MICAFUNGIN SODIUM
     Indication: Enterococcal infection
  6. AMOXICILLIN [Concomitant]
     Active Substance: AMOXICILLIN
     Indication: Aspergillus infection
     Dosage: UNK
     Route: 048
  7. AMOXICILLIN [Concomitant]
     Active Substance: AMOXICILLIN
     Indication: Pantoea agglomerans infection
  8. AMOXICILLIN [Concomitant]
     Active Substance: AMOXICILLIN
     Indication: Enterococcal infection

REACTIONS (3)
  - Product prescribing issue [Unknown]
  - Drug effective for unapproved indication [Unknown]
  - No adverse event [Unknown]
